FAERS Safety Report 9794345 (Version 1)
Quarter: 2014Q1

REPORT INFORMATION
  Report Type: Spontaneous
  Country: US (occurrence: US)
  Receive Date: 20140102
  Receipt Date: 20140102
  Transmission Date: 20141002
  Serious: Yes (Life-Threatening)
  Sender: FDA-Public Use
  Company Number: US-PFIZER INC-2013373813

PATIENT
  Age: 60 Year
  Sex: Female

DRUGS (2)
  1. BENZYLPENICILLIN POTASSIUM [Suspect]
     Indication: STREPTOCOCCAL ENDOCARDITIS
     Dosage: 5X10^6 UNITS, EVERY 12 HOURS DURING 45-60 MINUTE
     Route: 042
  2. BENZYLPENICILLIN POTASSIUM [Suspect]
     Indication: SEPSIS
     Dosage: 4X10^6 UNITS, IN A 10-15 MINS
     Route: 041

REACTIONS (3)
  - Hyperkalaemia [Recovering/Resolving]
  - Cardiac arrest [Recovering/Resolving]
  - Ventricular fibrillation [Recovering/Resolving]
